FAERS Safety Report 11792375 (Version 2)
Quarter: 2015Q4

REPORT INFORMATION
  Report Type: Report from Study
  Country: NL (occurrence: NL)
  Receive Date: 20151202
  Receipt Date: 20151219
  Transmission Date: 20160305
  Serious: Yes (Death, Other)
  Sender: FDA-Public Use
  Company Number: NL-AMGEN-NLDSL2015127173

PATIENT
  Age: 58 Year
  Sex: Male

DRUGS (2)
  1. XGEVA [Suspect]
     Active Substance: DENOSUMAB
     Dosage: UNK
     Route: 058
  2. XGEVA [Suspect]
     Active Substance: DENOSUMAB
     Indication: PROPHYLAXIS
     Dosage: 1.7 ML (120MG), Q4WK
     Route: 058

REACTIONS (3)
  - Lung infection [Recovering/Resolving]
  - Death [Fatal]
  - Contusion [Unknown]

NARRATIVE: CASE EVENT DATE: 20151119
